FAERS Safety Report 16257929 (Version 2)
Quarter: 2019Q2

REPORT INFORMATION
  Report Type: Spontaneous
  Country: PT (occurrence: PT)
  Receive Date: 20190430
  Receipt Date: 20190531
  Transmission Date: 20190711
  Serious: Yes (Other)
  Sender: FDA-Public Use
  Company Number: PT-ASTRAZENECA-2019SE64765

PATIENT
  Age: 13 Year
  Sex: Male

DRUGS (1)
  1. SYMBICORT [Suspect]
     Active Substance: BUDESONIDE\FORMOTEROL FUMARATE DIHYDRATE
     Dosage: 160 MCG/4.5 MCG WITH UNKNOWN FREQUENCY UNKNOWN
     Route: 055
     Dates: end: 201904

REACTIONS (4)
  - Drug ineffective [Unknown]
  - Intentional device misuse [Unknown]
  - Asthmatic crisis [Unknown]
  - Device malfunction [Unknown]
